FAERS Safety Report 4672808-9 (Version None)
Quarter: 2005Q2

REPORT INFORMATION
  Report Type: 
  Country: None (occurrence: None)
  Receive Date: 20050523
  Receipt Date: 20050509
  Transmission Date: 20051028
  Serious: Yes (Other)
  Sender: FDA-Public Use
  Company Number: 2005073511

PATIENT
  Age: 58 Year
  Sex: Female
  Weight: 80 kg

DRUGS (2)
  1. DALTEPARIN (DALTEPARIN) [Suspect]
     Indication: PULMONARY EMBOLISM
     Dosage: (15000 I.U.), SUBCUTANEOUS
     Route: 058
     Dates: start: 20050412, end: 20050412
  2. WARFARIN SODIUM [Concomitant]

REACTIONS (2)
  - CONTUSION [None]
  - RASH [None]
